FAERS Safety Report 5161139-9 (Version None)
Quarter: 2006Q4

REPORT INFORMATION
  Report Type: 
  Country: None (occurrence: None)
  Receive Date: 20061121
  Receipt Date: 20061109
  Transmission Date: 20070319
  Serious: Yes (Hospitalization)
  Sender: FDA-Public Use
  Company Number: MEDI-0004544

PATIENT
  Age: 23 Month

DRUGS (5)
  1. SYNAGIS [Suspect]
     Indication: ANTIVIRAL PROPHYLAXIS
     Dosage: 180 MG, 1 IN 1 30 D, INTRAMUSCULAR
     Route: 030
     Dates: start: 20051026, end: 20051028
  2. SYNAGIS [Suspect]
     Indication: ANTIVIRAL PROPHYLAXIS
     Dosage: 180 MG, 1 IN 1 30 D, INTRAMUSCULAR
     Route: 030
     Dates: start: 20051223
  3. SYNAGIS [Suspect]
     Indication: ANTIVIRAL PROPHYLAXIS
     Dosage: 180 MG, 1 IN 1 30 D, INTRAMUSCULAR
     Route: 030
     Dates: start: 20060123
  4. SYNAGIS [Suspect]
     Indication: ANTIVIRAL PROPHYLAXIS
     Dosage: 180 MG, 1 IN 1 30 D, INTRAMUSCULAR
     Route: 030
     Dates: start: 20060220
  5. SYNAGIS [Suspect]
     Indication: ANTIVIRAL PROPHYLAXIS
     Dosage: 180 MG, 1 IN 1 30 D, INTRAMUSCULAR
     Route: 030
     Dates: start: 20060322

REACTIONS (2)
  - RESPIRATORY DISTRESS [None]
  - RESPIRATORY TRACT CONGESTION [None]
